FAERS Safety Report 9792914 (Version 3)
Quarter: 2017Q3

REPORT INFORMATION
  Report Type: Spontaneous
  Country: US (occurrence: US)
  Receive Date: 20140102
  Receipt Date: 20170928
  Transmission Date: 20171128
  Serious: No
  Sender: FDA-Public Use
  Company Number: US-SA-2013SA119301

PATIENT
  Age: 57 Year
  Sex: Female

DRUGS (1)
  1. AUBAGIO [Suspect]
     Active Substance: TERIFLUNOMIDE
     Indication: MULTIPLE SCLEROSIS
     Route: 065
     Dates: start: 201211

REACTIONS (5)
  - Inflammation [Unknown]
  - Hepatic enzyme increased [Unknown]
  - Hypoaesthesia [Unknown]
  - Hypertension [Unknown]
  - Paraesthesia [Unknown]
